FAERS Safety Report 10170550 (Version 2)
Quarter: 2014Q3

REPORT INFORMATION
  Report Type: Report from Study
  Country: NL (occurrence: NL)
  Receive Date: 20140513
  Receipt Date: 20140901
  Transmission Date: 20150326
  Serious: Yes (Death, Other)
  Sender: FDA-Public Use
  Company Number: PHHY2014NL057490

PATIENT
  Sex: Male

DRUGS (4)
  1. ZOMETA [Suspect]
     Active Substance: ZOLEDRONIC ACID
     Dosage: 4 MG/100ML, PER 4 WEEKS
     Route: 042
     Dates: start: 20110105
  2. ZOMETA [Suspect]
     Active Substance: ZOLEDRONIC ACID
     Dosage: 4 MG/100ML, PER 4 WEEKS
     Route: 042
     Dates: start: 20140325
  3. ZOMETA [Suspect]
     Active Substance: ZOLEDRONIC ACID
     Dosage: 4 MG/100ML, PER 4 WEEKS
     Route: 042
     Dates: start: 20140425, end: 20140425
  4. ZOMETA [Suspect]
     Active Substance: ZOLEDRONIC ACID
     Indication: PROSTATE CANCER METASTATIC
     Dosage: 4 MG/100ML, PER 4 WEEKS
     Route: 042

REACTIONS (1)
  - Terminal state [Fatal]
